FAERS Safety Report 22133412 (Version 2)
Quarter: 2023Q1

REPORT INFORMATION
  Report Type: Other
  Country: PK (occurrence: None)
  Receive Date: 20230324
  Receipt Date: 20230327
  Transmission Date: 20230418
  Serious: Yes (Death)
  Sender: FDA-Public Use
  Company Number: PK-ROCHE-3314604

PATIENT
  Age: 39 Year
  Sex: Female

DRUGS (1)
  1. RITUXIMAB [Suspect]
     Active Substance: RITUXIMAB
     Indication: Rheumatoid arthritis
     Route: 041
     Dates: start: 20220509, end: 20220524

REACTIONS (1)
  - Death [Fatal]

NARRATIVE: CASE EVENT DATE: 20220528
